FAERS Safety Report 6917274-5 (Version None)
Quarter: 2010Q3

REPORT INFORMATION
  Report Type: 
  Country: None (occurrence: None)
  Receive Date: 20100810
  Receipt Date: 20100804
  Transmission Date: 20110219
  Serious: Yes (Life-Threatening, Hospitalization)
  Sender: FDA-Public Use
  Company Number: ES-MERCK-1008ESP00006

PATIENT
  Age: 76 Year
  Sex: Female

DRUGS (5)
  1. ZETIA [Suspect]
     Indication: DYSLIPIDAEMIA
     Route: 048
     Dates: start: 20090701, end: 20100519
  2. TORSEMIDE [Concomitant]
     Route: 048
     Dates: start: 20100505, end: 20100519
  3. ASPIRIN [Concomitant]
     Route: 048
     Dates: end: 20100519
  4. FUROSEMIDE [Concomitant]
     Route: 048
     Dates: start: 20100514, end: 20100519
  5. FLUVASTATIN SODIUM [Suspect]
     Indication: DYSLIPIDAEMIA
     Route: 048
     Dates: start: 20080701, end: 20100519

REACTIONS (3)
  - DRUG INTERACTION [None]
  - PANCREATITIS [None]
  - RHABDOMYOLYSIS [None]
